FAERS Safety Report 14326003 (Version 1)
Quarter: 2017Q4

REPORT INFORMATION
  Report Type: Report from Study
  Country: US (occurrence: US)
  Receive Date: 20171226
  Receipt Date: 20171226
  Transmission Date: 20180321
  Serious: Yes (Hospitalization, Other)
  Sender: FDA-Public Use
  Company Number: US-IPSEN BIOPHARMACEUTICALS, INC.-2017-16183

PATIENT
  Age: 63 Year
  Sex: Female
  Weight: 60 kg

DRUGS (18)
  1. CARAFATE [Concomitant]
     Active Substance: SUCRALFATE
  2. FERROUS SULFATE. [Concomitant]
     Active Substance: FERROUS SULFATE
  3. LEUCOVORIN. [Suspect]
     Active Substance: LEUCOVORIN
     Dosage: 568 MG
     Route: 042
     Dates: start: 20171017, end: 20171017
  4. FLUOROURACIL. [Suspect]
     Active Substance: FLUOROURACIL
     Indication: PANCREATIC CARCINOMA
     Dosage: 3480 MG
     Route: 042
     Dates: start: 20170926, end: 20170926
  5. LOMOTIL [Concomitant]
     Active Substance: ATROPINE SULFATE\DIPHENOXYLATE HYDROCHLORIDE
  6. VITAMIN D [Concomitant]
     Active Substance: CHOLECALCIFEROL
  7. FLUOROURACIL. [Suspect]
     Active Substance: FLUOROURACIL
     Dosage: 3408 MG
     Route: 042
     Dates: start: 20171017, end: 20171017
  8. OMEPRAZOLE. [Concomitant]
     Active Substance: OMEPRAZOLE
  9. DEXAMETHASONE. [Concomitant]
     Active Substance: DEXAMETHASONE
     Route: 042
  10. LIDOCAINE. [Concomitant]
     Active Substance: LIDOCAINE
     Route: 061
  11. ONIVYDE [Suspect]
     Active Substance: IRINOTECAN HYDROCHLORIDE
     Indication: PANCREATIC CARCINOMA
     Dosage: 100 MG
     Route: 042
     Dates: start: 20170926, end: 20170926
  12. MULTIVITAMIN [Concomitant]
     Active Substance: VITAMINS
  13. ONIVYDE [Suspect]
     Active Substance: IRINOTECAN HYDROCHLORIDE
     Dosage: 78 MG
     Route: 042
     Dates: start: 20171017, end: 20171017
  14. LEUCOVORIN. [Suspect]
     Active Substance: LEUCOVORIN
     Indication: PANCREATIC CARCINOMA
     Dosage: 580 MG
     Route: 042
     Dates: start: 20170926, end: 20170926
  15. CALCIUM [Concomitant]
     Active Substance: CALCIUM
  16. ASCORBIC ACID. [Concomitant]
     Active Substance: ASCORBIC ACID
  17. LOPERAMIDE [Concomitant]
     Active Substance: LOPERAMIDE
  18. ONDANSETRON [Concomitant]
     Active Substance: ONDANSETRON

REACTIONS (8)
  - Hepatic neoplasm [Not Recovered/Not Resolved]
  - Liver abscess [Not Recovered/Not Resolved]
  - Gastrointestinal wall thickening [Not Recovered/Not Resolved]
  - Gastrointestinal oedema [Not Recovered/Not Resolved]
  - Sepsis [Not Recovered/Not Resolved]
  - Inappropriate schedule of drug administration [Unknown]
  - Disease progression [Not Recovered/Not Resolved]
  - Portal vein thrombosis [Not Recovered/Not Resolved]

NARRATIVE: CASE EVENT DATE: 2017
